FAERS Safety Report 7905005-1 (Version None)
Quarter: 2011Q4

REPORT INFORMATION
  Report Type: 
  Country: None (occurrence: None)
  Receive Date: 20111109
  Receipt Date: 20111102
  Transmission Date: 20120403
  Serious: Yes (Other)
  Sender: FDA-Public Use
  Company Number: PHEH2011US04817

PATIENT
  Sex: Female

DRUGS (6)
  1. PREDNISONE [Suspect]
     Dosage: 8 DF, DAILY FOR 4 DAYS
     Route: 048
  2. PREDNISONE [Suspect]
     Dosage: 3 DF, DAILY FOR 4 DAYS
  3. PROVIGIL [Concomitant]
  4. PREDNISONE [Suspect]
     Dosage: 2 DF, DAILY FOR 4 DAYS
     Dates: end: 20111011
  5. GILENYA [Suspect]
     Indication: MULTIPLE SCLEROSIS
     Dosage: 0.5 MG, QD
     Route: 048
     Dates: start: 20110701
  6. VITAMINS NOS [Concomitant]

REACTIONS (8)
  - DIZZINESS [None]
  - ASTHENIA [None]
  - VISUAL ACUITY REDUCED [None]
  - DYSPNOEA [None]
  - TREMOR [None]
  - GAIT DISTURBANCE [None]
  - HEADACHE [None]
  - FATIGUE [None]
